FAERS Safety Report 25364373 (Version 1)
Quarter: 2025Q2

REPORT INFORMATION
  Report Type: Spontaneous
  Country: FR (occurrence: FR)
  Receive Date: 20250527
  Receipt Date: 20250527
  Transmission Date: 20250717
  Serious: Yes (Death)
  Sender: PFIZER
  Company Number: None

PATIENT
  Age: 71 Year
  Sex: Male
  Weight: 71 kg

DRUGS (5)
  1. ALDACTONE [Suspect]
     Active Substance: SPIRONOLACTONE
     Route: 048
     Dates: start: 20250329, end: 20250422
  2. AMOXICILLIN [Suspect]
     Active Substance: AMOXICILLIN
     Indication: Bacteraemia
     Dosage: 14 G, 1X/DAY
     Route: 042
     Dates: start: 20250419, end: 20250423
  3. AMOXICILLIN [Suspect]
     Active Substance: AMOXICILLIN
     Dosage: 2 G, 1X/DAY
     Route: 042
     Dates: start: 20250424, end: 20250426
  4. FUROSEMIDE SODIUM [Suspect]
     Active Substance: FUROSEMIDE SODIUM
     Indication: Cardiac failure
     Dosage: 80 MG, 1X/DAY
     Route: 042
     Dates: start: 20250419, end: 20250423
  5. ENTRESTO [Suspect]
     Active Substance: SACUBITRIL\VALSARTAN
     Indication: Cardiac failure
     Dosage: 2 DF, 1X/DAY
     Route: 048
     Dates: start: 20210225, end: 20250423

REACTIONS (2)
  - Acute kidney injury [Fatal]
  - Crystal nephropathy [Fatal]

NARRATIVE: CASE EVENT DATE: 20250423
